FAERS Safety Report 19979234 (Version 5)
Quarter: 2022Q2

REPORT INFORMATION
  Report Type: Report from Study
  Country: DE (occurrence: DE)
  Receive Date: 20211020
  Receipt Date: 20220525
  Transmission Date: 20220721
  Serious: Yes (Hospitalization)
  Sender: FDA-Public Use
  Company Number: DE-EXELIXIS-XL18421043532

PATIENT

DRUGS (12)
  1. CABOZANTINIB [Suspect]
     Active Substance: CABOZANTINIB
     Indication: Renal cell carcinoma
     Dosage: 40 MG
     Dates: start: 20210707
  2. NIVOLUMAB [Suspect]
     Active Substance: NIVOLUMAB
     Indication: Renal cell carcinoma
     Dosage: 240 MG
     Route: 065
     Dates: start: 20210705
  3. Tantum-Verde-Spray [Concomitant]
     Indication: Product used for unknown indication
     Dosage: PM (AS NEEDED)
     Route: 048
     Dates: start: 20210901
  4. METAMIZOLE [Concomitant]
     Active Substance: METAMIZOLE
     Indication: Product used for unknown indication
     Dosage: 500 MILLIGRAM,FOUR TIMES A DAY
     Route: 048
     Dates: start: 20211002
  5. AMPHO-MORONAL [Concomitant]
     Active Substance: AMPHOTERICIN B
     Indication: Product used for unknown indication
     Dosage: 10 MG, PM (AS NEEDED)
     Route: 048
     Dates: start: 20211004
  6. RECESSAN [Concomitant]
     Indication: Product used for unknown indication
     Dosage: PM, AS NEEDED
     Route: 048
     Dates: start: 20211004
  7. ELACUTAN [Concomitant]
     Indication: Product used for unknown indication
     Dosage: PM, AS NEEDED
     Route: 061
     Dates: start: 20211026
  8. NYSTATIN [Concomitant]
     Active Substance: NYSTATIN
     Indication: Product used for unknown indication
     Dosage: DOSE NOT REPORTED, ML, 4 TIMES A DAY
     Route: 048
     Dates: start: 20211027
  9. LEVOTHYROXINE SODIUM [Concomitant]
     Active Substance: LEVOTHYROXINE SODIUM
     Indication: Product used for unknown indication
     Dosage: 50 UG, QD
     Route: 048
     Dates: start: 20211208, end: 20220202
  10. LEVOTHYROXINE SODIUM [Concomitant]
     Active Substance: LEVOTHYROXINE SODIUM
     Dosage: 75 UG, QD
     Route: 048
     Dates: start: 20220203, end: 20220413
  11. LEVOTHYROXINE SODIUM [Concomitant]
     Active Substance: LEVOTHYROXINE SODIUM
     Dosage: 100 UG, QD
     Route: 048
     Dates: start: 20220414
  12. MAGNESIUM [Concomitant]
     Active Substance: MAGNESIUM
     Indication: Product used for unknown indication
     Dosage: 300 MG, QD
     Route: 048
     Dates: start: 20220120

REACTIONS (9)
  - Cholecystitis acute [Recovered/Resolved]
  - Immune-mediated thyroiditis [Unknown]
  - Malaise [Recovered/Resolved]
  - Muscle spasms [Recovered/Resolved]
  - Abnormal loss of weight [Unknown]
  - Diarrhoea [Unknown]
  - Hypertension [Recovered/Resolved]
  - Stomatitis [Recovering/Resolving]
  - Palmar-plantar erythrodysaesthesia syndrome [Recovering/Resolving]

NARRATIVE: CASE EVENT DATE: 20210731
